FAERS Safety Report 7654642-0 (Version None)
Quarter: 2011Q3

REPORT INFORMATION
  Report Type: 
  Country: None (occurrence: None)
  Receive Date: 20110803
  Receipt Date: 20110728
  Transmission Date: 20111222
  Serious: Yes (Life-Threatening, Hospitalization)
  Sender: FDA-Public Use
  Company Number: DE-BRISTOL-MYERS SQUIBB COMPANY-15935273

PATIENT
  Age: 54 Year
  Sex: Male

DRUGS (3)
  1. CISPLATIN [Suspect]
     Indication: OESOPHAGEAL ADENOCARCINOMA
     Route: 042
     Dates: start: 20091126
  2. CAPECITABINE [Suspect]
     Indication: OESOPHAGEAL ADENOCARCINOMA
     Route: 048
     Dates: start: 20081126, end: 20081203
  3. DOCETAXEL [Suspect]
     Indication: OESOPHAGEAL ADENOCARCINOMA
     Route: 042
     Dates: start: 20081126

REACTIONS (1)
  - DIVERTICULAR PERFORATION [None]
